FAERS Safety Report 8016133-7 (Version None)
Quarter: 2011Q4

REPORT INFORMATION
  Report Type: 
  Country: None (occurrence: None)
  Receive Date: 20111230
  Receipt Date: 20111219
  Transmission Date: 20120403
  Serious: Yes (Hospitalization)
  Sender: FDA-Public Use
  Company Number: IT-CELGENEUS-083-20785-11071113

PATIENT
  Sex: Male

DRUGS (7)
  1. THALIDOMIDE [Suspect]
     Indication: MULTIPLE MYELOMA
     Dosage: 50 MILLIGRAM
     Route: 048
     Dates: start: 20110608, end: 20110611
  2. ALKERAN [Concomitant]
     Indication: MULTIPLE MYELOMA
     Dosage: 10 MILLIGRAM
     Route: 048
     Dates: start: 20110608, end: 20110611
  3. ASPIRIN [Concomitant]
     Route: 065
  4. OLPRESS [Concomitant]
  5. ARANESP [Concomitant]
     Route: 065
  6. PREDNISONE TAB [Concomitant]
     Indication: MULTIPLE MYELOMA
     Dosage: 50 MILLIGRAM
     Route: 048
     Dates: start: 20110608, end: 20110611
  7. ALLOPURINOL [Concomitant]
     Route: 065

REACTIONS (1)
  - HICCUPS [None]
